FAERS Safety Report 23578194 (Version 1)
Quarter: 2024Q1

REPORT INFORMATION
  Report Type: Spontaneous
  Country: GB (occurrence: GB)
  Receive Date: 20240229
  Receipt Date: 20240229
  Transmission Date: 20240410
  Serious: Yes (Hospitalization, Other)
  Sender: FDA-Public Use
  Company Number: GB-CELLTRION INC.-2024GB005114

PATIENT

DRUGS (11)
  1. TRASTUZUMAB [Suspect]
     Active Substance: TRASTUZUMAB
     Indication: Breast cancer
     Dosage: 600 MG, EVERY 3 WEEKS
     Dates: start: 20231128
  2. BEZAFIBRATE [Concomitant]
     Active Substance: BEZAFIBRATE
     Indication: Adverse drug reaction
     Dosage: UNK
     Dates: start: 2010
  3. BEZAFIBRATE [Concomitant]
     Active Substance: BEZAFIBRATE
     Indication: Blood cholesterol increased
  4. CALCIUM CARBONATE\CHOLECALCIFEROL [Concomitant]
     Active Substance: CALCIUM CARBONATE\CHOLECALCIFEROL
     Indication: Osteopenia
     Dosage: UNK
     Dates: start: 202305
  5. CALCIUM CARBONATE\CHOLECALCIFEROL [Concomitant]
     Active Substance: CALCIUM CARBONATE\CHOLECALCIFEROL
     Indication: Vitamin D decreased
  6. CALCIUM CARBONATE\CHOLECALCIFEROL [Concomitant]
     Active Substance: CALCIUM CARBONATE\CHOLECALCIFEROL
     Indication: Adverse drug reaction
  7. LETROZOLE [Concomitant]
     Active Substance: LETROZOLE
     Indication: Breast cancer
     Dosage: UNK
     Dates: start: 20231111
  8. NOVORAPID [Concomitant]
     Active Substance: INSULIN ASPART
     Indication: Type 1 diabetes mellitus
     Dosage: UNK
     Dates: start: 2010
  9. NOVORAPID [Concomitant]
     Active Substance: INSULIN ASPART
     Indication: Adverse drug reaction
  10. LEVEMIR [Concomitant]
     Active Substance: INSULIN DETEMIR
     Indication: Type 1 diabetes mellitus
     Dosage: UNK
     Dates: start: 2010
  11. LEVEMIR [Concomitant]
     Active Substance: INSULIN DETEMIR
     Indication: Adverse drug reaction

REACTIONS (13)
  - Eye swelling [Recovered/Resolved]
  - Joint swelling [Recovering/Resolving]
  - Visual impairment [Recovered/Resolved]
  - Injection site mass [Unknown]
  - Syncope [Unknown]
  - Nausea [Recovered/Resolved]
  - Headache [Recovered/Resolved]
  - Arthralgia [Not Recovered/Not Resolved]
  - Pain in extremity [Not Recovered/Not Resolved]
  - Pyrexia [Recovered/Resolved]
  - Chills [Unknown]
  - Tremor [Unknown]
  - Overdose [Unknown]

NARRATIVE: CASE EVENT DATE: 20231128
